FAERS Safety Report 23749619 (Version 1)
Quarter: 2024Q2

REPORT INFORMATION
  Report Type: Spontaneous
  Country: JP (occurrence: JP)
  Receive Date: 20240416
  Receipt Date: 20240416
  Transmission Date: 20240716
  Serious: Yes (Other)
  Sender: FDA-Public Use
  Company Number: JP-002147023-NVSJ2024JP003840

PATIENT
  Sex: Female

DRUGS (2)
  1. LUTATHERA [Suspect]
     Active Substance: LUTETIUM OXODOTREOTIDE LU-177
     Indication: Small intestine neuroendocrine tumour
     Dosage: 7.4 GBQ
     Route: 042
     Dates: start: 20231026
  2. LUTATHERA [Suspect]
     Active Substance: LUTETIUM OXODOTREOTIDE LU-177
     Dosage: 3.7 GBQ
     Route: 042
     Dates: start: 20240215, end: 20240215

REACTIONS (4)
  - Lymphocyte count decreased [Not Recovered/Not Resolved]
  - Femoral neck fracture [Unknown]
  - Haemoglobin decreased [Recovered/Resolved]
  - Inappropriate schedule of product administration [Unknown]

NARRATIVE: CASE EVENT DATE: 20230101
